FAERS Safety Report 4286986-7 (Version None)
Quarter: 2004Q1

REPORT INFORMATION
  Report Type: 
  Country: None (occurrence: None)
  Receive Date: 20040204
  Receipt Date: 20040121
  Transmission Date: 20041129
  Serious: Yes (Hospitalization)
  Sender: FDA-Public Use
  Company Number: 2004PK00164

PATIENT
  Age: 74 Year
  Sex: Female
  Weight: 62 kg

DRUGS (5)
  1. BELOC ZOK [Suspect]
     Indication: HYPERTENSION
     Dosage: 47.5 MG DAILY PO
     Route: 048
     Dates: start: 20020101
  2. NORVASC [Suspect]
     Indication: HYPERTENSION
     Dosage: 5 MG DAILY PO
     Route: 048
     Dates: start: 20030501, end: 20030926
  3. ACETYLSALICYLIC ACID SRT [Suspect]
     Indication: CORONARY ARTERY DISEASE
     Dosage: 100 MG DAILY PO
     Route: 048
     Dates: start: 20020101, end: 20030926
  4. CYNT [Suspect]
     Indication: HYPERTENSION
     Dosage: 0.2 MG QD PO
     Route: 048
     Dates: start: 20010101
  5. LORZAAR PLUS [Suspect]
     Indication: HYPERTENSION
     Dosage: 1 DF DAILY PO
     Route: 048
     Dates: start: 20020101

REACTIONS (4)
  - DIZZINESS [None]
  - DRUG INTERACTION [None]
  - FATIGUE [None]
  - GASTRITIS EROSIVE [None]
